FAERS Safety Report 8331681-8 (Version None)
Quarter: 2012Q2

REPORT INFORMATION
  Report Type: 
  Country: None (occurrence: None)
  Receive Date: 20120502
  Receipt Date: 20111107
  Transmission Date: 20120825
  Serious: No
  Sender: FDA-Public Use
  Company Number: US-ASTRAZENECA-2011SE67135

PATIENT
  Age: 86 Year
  Sex: Male
  Weight: 74.8 kg

DRUGS (8)
  1. FLOMAX [Concomitant]
  2. ENTOCORT EC [Suspect]
     Route: 048
  3. ENTOCORT EC [Suspect]
     Route: 048
  4. ENTOCORT EC [Suspect]
     Indication: COLITIS MICROSCOPIC
     Route: 048
     Dates: start: 20100201
  5. ENTOCORT EC [Suspect]
     Route: 048
  6. ENTOCORT EC [Suspect]
     Route: 048
  7. LIPITOR [Concomitant]
  8. AMBIEN [Concomitant]

REACTIONS (2)
  - FATIGUE [None]
  - OFF LABEL USE [None]
